FAERS Safety Report 8560790-3 (Version None)
Quarter: 2012Q3

REPORT INFORMATION
  Report Type: 
  Country: None (occurrence: None)
  Receive Date: 20120802
  Receipt Date: 20120730
  Transmission Date: 20120928
  Serious: Yes (Other)
  Sender: FDA-Public Use
  Company Number: US-GILEAD-2012-0057961

PATIENT
  Sex: Female

DRUGS (3)
  1. LETAIRIS [Suspect]
     Indication: ANTIBIOTIC THERAPY
  2. LETAIRIS [Suspect]
     Indication: PULMONARY HYPERTENSION
     Dosage: UNK
     Route: 048
     Dates: start: 20120409
  3. LETAIRIS [Suspect]
     Indication: LUNG DISORDER

REACTIONS (4)
  - DIZZINESS [None]
  - ROAD TRAFFIC ACCIDENT [None]
  - PNEUMONIA ASPIRATION [None]
  - UNEVALUABLE EVENT [None]
